FAERS Safety Report 9515555 (Version 1)
Quarter: 2013Q1

REPORT INFORMATION
  Report Type: Spontaneous
  Country: US (occurrence: None)
  Receive Date: 20130305
  Receipt Date: 20130305
  Transmission Date: 20140127
  Serious: Yes (Hospitalization, Other)
  Sender: FDA-Public Use
  Company Number: 163-21880-12122870

PATIENT
  Age: 77 Year
  Sex: Male
  Weight: 62.6 kg

DRUGS (6)
  1. REVLIMID (LENALIDOMIDE) (25 MILLIGRAM, CAPSULES) [Suspect]
     Indication: PLASMA CELL MYELOMA
     Dosage: 25 MG, 1 IN 1 D, PO
     Route: 048
     Dates: start: 20121002
  2. LASIX (FUROSEMIDE) [Concomitant]
  3. METOPROLOL TARTRATE (METOPROLOL) [Concomitant]
  4. METOPROLOL TARTRATE (METOPROLOL TARTRATE) (TABLETS) (METOPROLOL TARTRATE) [Concomitant]
  5. PRILOSEC (OMEPARZOLE) (CAPSULE) [Concomitant]
  6. TAMSULOSIN HCL (TAMSULOSIN HYDROCHLORIDE) [Concomitant]

REACTIONS (2)
  - Weight decreased [None]
  - Chest pain [None]
